FAERS Safety Report 10984038 (Version 2)
Quarter: 2015Q2

REPORT INFORMATION
  Report Type: Spontaneous
  Country: US (occurrence: US)
  Receive Date: 20150403
  Receipt Date: 20150515
  Transmission Date: 20150821
  Serious: Yes (Other)
  Sender: FDA-Public Use
  Company Number: US-PFIZER INC-2015115633

PATIENT
  Age: 17 Year
  Sex: Male
  Weight: 68 kg

DRUGS (6)
  1. PENTASA [Concomitant]
     Active Substance: MESALAMINE
     Dosage: UNK
  2. GENOTROPIN [Suspect]
     Active Substance: SOMATROPIN
     Indication: GROWTH HORMONE DEFICIENCY
     Dosage: 2.8 MG, 6X/WEEK (ONCE DAILY)
     Route: 058
  3. IRON [Concomitant]
     Active Substance: IRON
     Dosage: UNK
  4. ZINC [Concomitant]
     Active Substance: ZINC\ZINC CHLORIDE
     Dosage: UNK
  5. GENOTROPIN [Suspect]
     Active Substance: SOMATROPIN
     Indication: BODY HEIGHT BELOW NORMAL
  6. LORATADINE. [Concomitant]
     Active Substance: LORATADINE
     Dosage: UNK

REACTIONS (2)
  - Testicular pain [Recovered/Resolved]
  - Epididymitis [Recovered/Resolved]

NARRATIVE: CASE EVENT DATE: 20150330
